FAERS Safety Report 4643465-2 (Version None)
Quarter: 2005Q2

REPORT INFORMATION
  Report Type: 
  Country: None (occurrence: None)
  Receive Date: 20050420
  Receipt Date: 20050420
  Transmission Date: 20051028
  Serious: Yes (Hospitalization)
  Sender: FDA-Public Use
  Company Number: None

PATIENT
  Age: 49 Year
  Sex: Female
  Weight: 72.5755 kg

DRUGS (3)
  1. LEXAPRO [Suspect]
     Indication: BIPOLAR DISORDER
  2. SYNTHROID [Concomitant]
  3. INDERAL [Concomitant]

REACTIONS (1)
  - HALLUCINATION [None]
